FAERS Safety Report 19377718 (Version 2)
Quarter: 2024Q3

REPORT INFORMATION
  Report Type: Spontaneous
  Country: IT (occurrence: IT)
  Receive Date: 20210605
  Receipt Date: 20240823
  Transmission Date: 20241017
  Serious: Yes (Other)
  Sender: ACCORD
  Company Number: IT-ACCORD-223867

PATIENT
  Age: 44 Year
  Sex: Female

DRUGS (2)
  1. TACROLIMUS [Suspect]
     Active Substance: TACROLIMUS
     Indication: Immunosuppression
     Dates: start: 2003
  2. PREDNISONE [Suspect]
     Active Substance: PREDNISONE
     Indication: Immunosuppression
     Dates: start: 2003

REACTIONS (2)
  - Plasmablastic lymphoma [Recovering/Resolving]
  - Post transplant lymphoproliferative disorder [Recovering/Resolving]

NARRATIVE: CASE EVENT DATE: 20180101
